FAERS Safety Report 6881452-4 (Version None)
Quarter: 2010Q3

REPORT INFORMATION
  Report Type: 
  Country: None (occurrence: None)
  Receive Date: 20100728
  Receipt Date: 20100728
  Transmission Date: 20110219
  Serious: Yes (Death)
  Sender: FDA-Public Use
  Company Number: None

PATIENT
  Age: 17 Year
  Sex: Female
  Weight: 74.3899 kg

DRUGS (2)
  1. TUSSIN-DM SYRUP FAMILY DOLLAR DEXTROMETHORPHAN HBR, USP 10MG GUAIFENES [Suspect]
     Indication: COUGH
     Dosage: 2 TEASPOONFULS 4 HOURS PO
     Route: 048
     Dates: start: 20050425, end: 20050427
  2. TUSSIN-DM SYRUP FAMILY DOLLAR DEXTROMETHORPHAN HBR, USP 10MG GUAIFENES [Suspect]
     Indication: NASOPHARYNGITIS
     Dosage: 2 TEASPOONFULS 4 HOURS PO
     Route: 048
     Dates: start: 20050425, end: 20050427

REACTIONS (3)
  - DRUG TOXICITY [None]
  - LOSS OF CONSCIOUSNESS [None]
  - PRODUCT QUALITY ISSUE [None]
